FAERS Safety Report 5047195-7 (Version None)
Quarter: 2006Q3

REPORT INFORMATION
  Report Type: 
  Country: None (occurrence: None)
  Receive Date: 20060703
  Receipt Date: 20060627
  Transmission Date: 20061208
  Serious: Yes (Hospitalization)
  Sender: FDA-Public Use
  Company Number: EM2006-0335

PATIENT
  Age: 39 Year
  Sex: Male
  Weight: 60 kg

DRUGS (13)
  1. PROLEUKIN [Suspect]
     Indication: HIV INFECTION
     Dosage: 9 MIU, QD, SUBCUTAN.
     Route: 058
     Dates: start: 20021202, end: 20021206
  2. PROLEUKIN [Suspect]
     Indication: HIV INFECTION
     Dosage: 9 MIU, QD, SUBCUTAN.
     Route: 058
     Dates: start: 20030217, end: 20030221
  3. PROLEUKIN [Suspect]
     Indication: HIV INFECTION
     Dosage: 9 MIU, QD, SUBCUTAN.
     Route: 058
     Dates: start: 20030414, end: 20030418
  4. PROLEUKIN [Suspect]
     Indication: HIV INFECTION
     Dosage: 9 MIU, QD, SUBCUTAN.
     Route: 058
     Dates: start: 20031105, end: 20031109
  5. PROLEUKIN [Suspect]
     Indication: HIV INFECTION
     Dosage: 9 MIU, QD, SUBCUTAN.
     Route: 058
     Dates: start: 20040409, end: 20040413
  6. PROLEUKIN [Suspect]
     Indication: HIV INFECTION
     Dosage: 9 MIU, QD, SUBCUTAN.
     Route: 058
     Dates: start: 20040705, end: 20040709
  7. PROLEUKIN [Suspect]
     Indication: HIV INFECTION
     Dosage: 9 MIU, QD, SUBCUTAN.
     Route: 058
     Dates: start: 20050527, end: 20050531
  8. PROLEUKIN [Suspect]
     Indication: HIV INFECTION
     Dosage: 9 MIU, QD, SUBCUTAN.
     Route: 058
     Dates: start: 20051001, end: 20051001
  9. PEG INTERFERON (INTERFERON ALFA) SOLUTION FOR INJECTION [Suspect]
     Dosage: 180 UG, QW
     Dates: start: 20041103, end: 20041130
  10. RIBAVIRIN (RIBAVIRIN) TABLET [Suspect]
     Indication: HEPATITIS C
     Dosage: 1200 MG, QD
     Dates: start: 20041103, end: 20041130
  11. EMTRIVA [Concomitant]
  12. VIREAD [Concomitant]
  13. KALETRA [Concomitant]

REACTIONS (2)
  - RETINAL DETACHMENT [None]
  - VISUAL ACUITY REDUCED [None]
